FAERS Safety Report 24214046 (Version 1)
Quarter: 2024Q3

REPORT INFORMATION
  Report Type: Spontaneous
  Country: US (occurrence: US)
  Receive Date: 20240815
  Receipt Date: 20240815
  Transmission Date: 20241017
  Serious: No
  Sender: TEIKOKU
  Company Number: US-TPU-TPU-2024-00420

PATIENT
  Age: 78 Year
  Sex: Female

DRUGS (5)
  1. LIDOCAINE [Suspect]
     Active Substance: LIDOCAINE
     Indication: Muscle strain
     Dates: start: 20240729, end: 20240731
  2. CARVEDILOL [Concomitant]
     Active Substance: CARVEDILOL
  3. HYDROCHLOROTHIAZIDE [Concomitant]
     Active Substance: HYDROCHLOROTHIAZIDE
  4. Benazetril [Concomitant]
  5. Amloditine [Concomitant]

REACTIONS (1)
  - Drug ineffective for unapproved indication [Unknown]

NARRATIVE: CASE EVENT DATE: 20240729
